FAERS Safety Report 4422393-1 (Version None)
Quarter: 2004Q3

REPORT INFORMATION
  Report Type: 
  Country: None (occurrence: None)
  Receive Date: 20040806
  Receipt Date: 20040722
  Transmission Date: 20050211
  Serious: Yes (Other)
  Sender: FDA-Public Use
  Company Number: US-2004-029281

PATIENT
  Age: 62 Year
  Sex: Female

DRUGS (1)
  1. ULTRAVIST 300 [Suspect]
     Indication: COMPUTERISED TOMOGRAM
     Dosage: 125 ML, 1 DOSE, INTRAVENOUS
     Route: 042
     Dates: start: 20040628, end: 20040628

REACTIONS (4)
  - AGITATION [None]
  - CONTRAST MEDIA REACTION [None]
  - FEELING HOT [None]
  - SYNCOPE VASOVAGAL [None]
